FAERS Safety Report 23463916 (Version 1)
Quarter: 2024Q1

REPORT INFORMATION
  Report Type: Spontaneous
  Country: ES (occurrence: ES)
  Receive Date: 20240201
  Receipt Date: 20240201
  Transmission Date: 20240409
  Serious: Yes (Other)
  Sender: FDA-Public Use
  Company Number: ES-ETHYPHARM-2024000036

PATIENT
  Age: 56 Year
  Sex: Male

DRUGS (2)
  1. FLUCONAZOLE [Suspect]
     Active Substance: FLUCONAZOLE
     Indication: Meningitis candida
     Dosage: 200 MILLIGRAM, ONCE A DAY
     Route: 065
  2. DEXAMETHASONE [Concomitant]
     Active Substance: DEXAMETHASONE
     Indication: Rheumatoid arthritis
     Dosage: UNK, TOOK FOR 2 MONTHS UNTIL PRIOR TO ADMISSION
     Route: 065

REACTIONS (1)
  - Secondary adrenocortical insufficiency [Not Recovered/Not Resolved]
